FAERS Safety Report 5797622-2 (Version None)
Quarter: 2008Q2

REPORT INFORMATION
  Report Type: 
  Country: None (occurrence: None)
  Receive Date: 20080618
  Receipt Date: 20070618
  Transmission Date: 20081010
  Serious: Yes (Other)
  Sender: FDA-Public Use
  Company Number: 200714500US

PATIENT
  Age: 42 Year
  Sex: Male

DRUGS (2)
  1. LANTUS [Suspect]
     Indication: TYPE 2 DIABETES MELLITUS
     Dosage: HS
     Dates: start: 20060101
  2. STARLIX [Concomitant]

REACTIONS (3)
  - DYSGEUSIA [None]
  - HYPERHIDROSIS [None]
  - HYPOGLYCAEMIA [None]
